FAERS Safety Report 6588088-3 (Version None)
Quarter: 2010Q1

REPORT INFORMATION
  Report Type: 
  Country: None (occurrence: None)
  Receive Date: 20100217
  Receipt Date: 20100217
  Transmission Date: 20100710
  Serious: Yes (Life-Threatening)
  Sender: FDA-Public Use
  Company Number: None

PATIENT
  Age: 63 Year
  Sex: Male
  Weight: 85 kg

DRUGS (1)
  1. MEGESTROL [Suspect]
     Indication: PULMONARY EMBOLISM
     Dosage: 800 MG EVERY DAY PO
     Route: 048
     Dates: start: 20091118, end: 20091122

REACTIONS (3)
  - NEUTROPENIA [None]
  - PULMONARY EMBOLISM [None]
  - THROMBOCYTOPENIA [None]
